FAERS Safety Report 11201229 (Version 1)
Quarter: 2015Q2

REPORT INFORMATION
  Report Type: Not Available
  Country: US (occurrence: US)
  Receive Date: 20150619
  Receipt Date: 20150619
  Transmission Date: 20150821
  Serious: Yes (Disabling)
  Sender: FDA-Public Use
  Company Number: US-LUPIN PHARMACEUTICALS INC.-E2B_00003762

PATIENT
  Sex: Female
  Weight: 125 kg

DRUGS (2)
  1. LEVOFLOXACIN TABLETS 500 MG [Suspect]
     Active Substance: LEVOFLOXACIN
     Indication: URINARY TRACT INFECTION
     Dates: start: 20150521, end: 20150525
  2. PREDNISONE. [Concomitant]
     Active Substance: PREDNISONE
     Indication: PRODUCT USED FOR UNKNOWN INDICATION
     Route: 065

REACTIONS (2)
  - Tendon disorder [Not Recovered/Not Resolved]
  - Abasia [Recovered/Resolved]
